FAERS Safety Report 8220802-3 (Version None)
Quarter: 2012Q1

REPORT INFORMATION
  Report Type: 
  Country: None (occurrence: None)
  Receive Date: 20120319
  Receipt Date: 20120302
  Transmission Date: 20120608
  Serious: Yes (Other)
  Sender: FDA-Public Use
  Company Number: PHEH2012US005783

PATIENT
  Sex: Female
  Weight: 135 kg

DRUGS (8)
  1. VITAMIN B-12 [Concomitant]
     Dosage: 1 DF, QD
     Route: 048
  2. MULTI-VITAMIN [Concomitant]
     Dosage: 1 DF, QD
  3. CALCIUM CARBONATE [Concomitant]
  4. VITAMIN D [Concomitant]
     Dosage: 1000 U, QD
     Route: 048
  5. COENZYME [Concomitant]
     Dosage: 10 MG, UNK
  6. ERYTHROMYCIN BASE [Concomitant]
  7. RECLAST [Suspect]
     Indication: OSTEOPOROSIS
     Dosage: 5 MG, ONCE YEAR
     Route: 042
     Dates: start: 20120123
  8. MOBIC [Concomitant]

REACTIONS (5)
  - HEADACHE [None]
  - OEDEMA PERIPHERAL [None]
  - VOMITING [None]
  - CHEST PAIN [None]
  - ARTHRALGIA [None]
